FAERS Safety Report 7045973-6 (Version None)
Quarter: 2010Q4

REPORT INFORMATION
  Report Type: 
  Country: None (occurrence: None)
  Receive Date: 20101014
  Receipt Date: 20101013
  Transmission Date: 20110411
  Serious: Yes (Hospitalization, Other)
  Sender: FDA-Public Use
  Company Number: JP-PFIZER INC-2010097251

PATIENT
  Age: 65 Year
  Sex: Male

DRUGS (5)
  1. AMLODIPINE BESYLATE [Suspect]
     Indication: HYPERTENSION
     Dosage: 5 MG, 1X/DAY
     Route: 048
     Dates: start: 20100201
  2. AMLODIPINE BESYLATE [Suspect]
     Dosage: 10 MG, 1X/DAY
     Route: 048
     Dates: start: 20100416, end: 20100629
  3. ARTIST [Suspect]
     Indication: HYPERTENSION
     Dosage: 5 MG, 1X/DAY
     Route: 048
     Dates: start: 20100518, end: 20100629
  4. AVAPRO [Suspect]
     Indication: HYPERTENSION
     Dosage: 100 MG, UNK
     Route: 048
     Dates: start: 20100215, end: 20100629
  5. LIVALO [Suspect]
     Indication: DYSLIPIDAEMIA
     Dosage: 1 MG, 1X/DAY
     Route: 048
     Dates: start: 20100305, end: 20100629

REACTIONS (1)
  - CEREBRAL INFARCTION [None]
